FAERS Safety Report 14768630 (Version 1)
Quarter: 2018Q2

REPORT INFORMATION
  Report Type: Spontaneous
  Country: US (occurrence: US)
  Receive Date: 20180417
  Receipt Date: 20180417
  Transmission Date: 20180711
  Serious: No
  Sender: FDA-Public Use
  Company Number: US-TEVA-815520USA

PATIENT
  Sex: Female

DRUGS (2)
  1. ATENOLOL. [Suspect]
     Active Substance: ATENOLOL
     Indication: ARRHYTHMIA
     Route: 065
  2. ATENOLOL. [Suspect]
     Active Substance: ATENOLOL
     Indication: ARRHYTHMIA
     Route: 065

REACTIONS (5)
  - Hyperhidrosis [Unknown]
  - Chest pain [Unknown]
  - Wrong technique in product usage process [Unknown]
  - Alopecia [Unknown]
  - Product use in unapproved indication [Unknown]
